FAERS Safety Report 19076799 (Version 1)
Quarter: 2021Q1

REPORT INFORMATION
  Report Type: Report from Study
  Country: BR (occurrence: BR)
  Receive Date: 20210331
  Receipt Date: 20210331
  Transmission Date: 20210420
  Serious: Yes (Hospitalization, Other)
  Sender: FDA-Public Use
  Company Number: NVSC2021BR071429

PATIENT
  Sex: Female

DRUGS (1)
  1. COSENTYX [Suspect]
     Active Substance: SECUKINUMAB
     Indication: PSORIATIC ARTHROPATHY
     Dosage: UNK
     Route: 065
     Dates: start: 20180911

REACTIONS (23)
  - Otorrhoea [Unknown]
  - Foot deformity [Unknown]
  - Ingrowing nail [Unknown]
  - Nail infection [Unknown]
  - Product dose omission issue [Unknown]
  - Immunodeficiency [Unknown]
  - Ear disorder [Unknown]
  - Skin plaque [Unknown]
  - External ear inflammation [Unknown]
  - Ear pain [Unknown]
  - Skin exfoliation [Unknown]
  - Pain [Unknown]
  - Psoriasis [Unknown]
  - Erythema [Unknown]
  - Inflammation [Not Recovered/Not Resolved]
  - Wound [Unknown]
  - Arthralgia [Unknown]
  - Onychalgia [Unknown]
  - Pustule [Unknown]
  - Nail disorder [Unknown]
  - Nail bed inflammation [Unknown]
  - Dyspnoea [Recovered/Resolved with Sequelae]
  - Weight increased [Unknown]
